FAERS Safety Report 7866224-6 (Version None)
Quarter: 2011Q4

REPORT INFORMATION
  Report Type: 
  Country: None (occurrence: None)
  Receive Date: 20111028
  Receipt Date: 20110513
  Transmission Date: 20120403
  Serious: No
  Sender: FDA-Public Use
  Company Number: US-GLAXOSMITHKLINE-A0927313A

PATIENT
  Age: 85 Year
  Sex: Female

DRUGS (7)
  1. ADVAIR DISKUS 100/50 [Suspect]
     Indication: ASTHMA
     Dosage: 1PUFF PER DAY
     Route: 055
     Dates: start: 20010101
  2. PREMARIN [Concomitant]
  3. AMLODIPINE BESYLATE [Concomitant]
  4. OMEPRAZOLE [Concomitant]
  5. LISINOPRIL [Concomitant]
  6. VITAMIN TAB [Concomitant]
  7. FOSAMAX [Concomitant]

REACTIONS (5)
  - STOMATITIS [None]
  - DRY MOUTH [None]
  - DYSPNOEA [None]
  - LIP PAIN [None]
  - ORAL MUCOSAL ERUPTION [None]
